FAERS Safety Report 16114626 (Version 1)
Quarter: 2019Q1

REPORT INFORMATION
  Report Type: Spontaneous
  Country: FR (occurrence: FR)
  Receive Date: 20190325
  Receipt Date: 20190325
  Transmission Date: 20190418
  Serious: Yes (Hospitalization)
  Sender: FDA-Public Use
  Company Number: FR-ROCHE-2286193

PATIENT
  Age: 63 Year
  Sex: Female
  Weight: 49 kg

DRUGS (5)
  1. DIAZEPAM. [Suspect]
     Active Substance: DIAZEPAM
     Indication: ANXIETY
     Dosage: NOT KNOWN
     Route: 048
     Dates: start: 20190211, end: 20190214
  2. DUROGESIC [Concomitant]
     Active Substance: FENTANYL
     Route: 048
     Dates: start: 201808
  3. SERETIDE [Concomitant]
     Active Substance: FLUTICASONE PROPIONATE\SALMETEROL XINAFOATE
     Route: 055
     Dates: start: 201901
  4. IPRATROPIUM, BROMURE D^ [Concomitant]
     Route: 055
     Dates: start: 201901
  5. ORAMORPH [Concomitant]
     Active Substance: MORPHINE SULFATE
     Route: 048
     Dates: start: 201808

REACTIONS (1)
  - Agranulocytosis [Recovered/Resolved]

NARRATIVE: CASE EVENT DATE: 20190214
